FAERS Safety Report 12852971 (Version 2)
Quarter: 2019Q4

REPORT INFORMATION
  Report Type: Spontaneous
  Country: US (occurrence: US)
  Receive Date: 20161017
  Receipt Date: 20191003
  Transmission Date: 20200122
  Serious: No
  Sender: FDA-Public Use
  Company Number: US-JAZZ-2016-US-013946

PATIENT
  Age: 44 Year
  Sex: Female

DRUGS (21)
  1. MICROGESTIN FE [Concomitant]
     Active Substance: ETHINYL ESTRADIOL\FERROUS FUMARATE\NORETHINDRONE ACETATE
  2. LISINOPRIL. [Concomitant]
     Active Substance: LISINOPRIL
  3. ONDANSETRON [Concomitant]
     Active Substance: ONDANSETRON
  4. XYREM [Suspect]
     Active Substance: SODIUM OXYBATE
     Indication: NARCOLEPSY
     Dosage: 2.25 G, BID
     Route: 048
     Dates: start: 201305, end: 201305
  5. XYREM [Suspect]
     Active Substance: SODIUM OXYBATE
     Indication: CATAPLEXY
     Dosage: DOSE ADJUSTMENTS
     Route: 048
     Dates: start: 201305, end: 201501
  6. XYREM [Suspect]
     Active Substance: SODIUM OXYBATE
     Dosage: 4.5 G, BID
     Route: 048
     Dates: start: 201501
  7. AMITRIPTYLINE HYDROCHLORIDE. [Suspect]
     Active Substance: AMITRIPTYLINE HYDROCHLORIDE
     Indication: PRODUCT USED FOR UNKNOWN INDICATION
     Dosage: UNKNOWN DOSE
  8. FLUTICASONE PROPIONATE. [Concomitant]
     Active Substance: FLUTICASONE PROPIONATE
  9. MODAFINIL. [Concomitant]
     Active Substance: MODAFINIL
  10. OMEGA 3 FISH OILS [Concomitant]
     Active Substance: OMEGA-3 FATTY ACIDS
  11. VITAMIN D3 [Concomitant]
     Active Substance: CHOLECALCIFEROL
  12. ADDERALL [Concomitant]
     Active Substance: AMPHETAMINE ASPARTATE\AMPHETAMINE SULFATE\DEXTROAMPHETAMINE SACCHARATE\DEXTROAMPHETAMINE SULFATE
  13. AMLODIPINE BESYLATE. [Concomitant]
     Active Substance: AMLODIPINE BESYLATE
  14. ATIVAN [Concomitant]
     Active Substance: LORAZEPAM
  15. CHERATUSSIN AC [Concomitant]
     Active Substance: CODEINE PHOSPHATE\GUAIFENESIN
  16. IBUPROFEN. [Concomitant]
     Active Substance: IBUPROFEN
  17. CLONIDINE HCL [Concomitant]
     Active Substance: CLONIDINE HYDROCHLORIDE
  18. WELLBUTRIN [Concomitant]
     Active Substance: BUPROPION HYDROCHLORIDE
  19. CODEINE PHOSPHATE W/GUAIFENESIN [Concomitant]
     Active Substance: CODEINE PHOSPHATE\GUAIFENESIN
  20. CITALOPRAM [Concomitant]
     Active Substance: CITALOPRAM HYDROBROMIDE
  21. METFORMIN HCL [Concomitant]
     Active Substance: METFORMIN HYDROCHLORIDE

REACTIONS (6)
  - Feeling abnormal [Unknown]
  - Blood pressure increased [Recovering/Resolving]
  - Weight increased [Unknown]
  - Stress [Not Recovered/Not Resolved]
  - Motion sickness [Not Recovered/Not Resolved]
  - Gastroenteritis viral [Unknown]

NARRATIVE: CASE EVENT DATE: 201603
